FAERS Safety Report 20616522 (Version 1)
Quarter: 2022Q1

REPORT INFORMATION
  Report Type: Spontaneous
  Country: HR (occurrence: HR)
  Receive Date: 20220321
  Receipt Date: 20220321
  Transmission Date: 20220423
  Serious: Yes (Other)
  Sender: FDA-Public Use
  Company Number: None

PATIENT
  Age: 56 Year
  Sex: Male
  Weight: 90 kg

DRUGS (2)
  1. XELJANZ [Suspect]
     Active Substance: TOFACITINIB CITRATE
     Indication: Rheumatoid arthritis
     Dosage: 5 MG, 2X/DAY, FREQ: 0.5 D
     Route: 048
     Dates: start: 201810, end: 20210118
  2. ETANERCEPT [Suspect]
     Active Substance: ETANERCEPT
     Indication: Rheumatoid arthritis
     Dosage: 50 MG, WEEKLY
     Route: 058
     Dates: start: 20210225, end: 20210325

REACTIONS (12)
  - Blood creatine phosphokinase increased [Recovered/Resolved]
  - Polymyositis [Recovered/Resolved]
  - Skin disorder [Recovered/Resolved]
  - Arthralgia [Recovered/Resolved]
  - Aspartate aminotransferase increased [Recovered/Resolved]
  - Myopathy [Recovered/Resolved]
  - Alanine aminotransferase increased [Recovered/Resolved]
  - Localised oedema [Recovered/Resolved]
  - Myalgia [Recovered/Resolved]
  - Pyrexia [Recovered/Resolved]
  - Paraesthesia [Recovered/Resolved]
  - Influenza like illness [Recovered/Resolved]

NARRATIVE: CASE EVENT DATE: 20200101
